FAERS Safety Report 4806713-1 (Version None)
Quarter: 2005Q4

REPORT INFORMATION
  Report Type: 
  Country: None (occurrence: None)
  Receive Date: 20051019
  Receipt Date: 20051010
  Transmission Date: 20060501
  Serious: Yes (Death)
  Sender: FDA-Public Use
  Company Number: PHFR2005GB03331

PATIENT
  Age: 22 Year
  Sex: Male

DRUGS (3)
  1. DICLOFENAC SODIUM [Suspect]
     Indication: BACK PAIN
     Dosage: 500 MG, TID, ORAL
     Route: 048
     Dates: start: 20050830
  2. FLUOXETINE [Suspect]
     Indication: DEPRESSION
     Dosage: 20MG/DAY,ORAL
     Route: 048
     Dates: start: 20050616
  3. TEMAZEPAM [Concomitant]

REACTIONS (1)
  - COMPLETED SUICIDE [None]
